FAERS Safety Report 9734807 (Version 1)
Quarter: 2013Q4

REPORT INFORMATION
  Report Type: Spontaneous
  Country: US (occurrence: US)
  Receive Date: 20131206
  Receipt Date: 20131206
  Transmission Date: 20140711
  Serious: No
  Sender: FDA-Public Use
  Company Number: US-ENDO PHARMACEUTICALS INC.-OXYB20120001

PATIENT
  Sex: Female
  Weight: 54.48 kg

DRUGS (4)
  1. OXYBUTYNIN CHLORIDE TABLETS [Suspect]
     Indication: URINARY INCONTINENCE
     Route: 048
     Dates: start: 2009
  2. SYNTHROID [Concomitant]
     Indication: THYROID DISORDER
     Dosage: UNK
     Route: 048
     Dates: start: 2007
  3. ESTRACE [Concomitant]
     Indication: HORMONE REPLACEMENT THERAPY
     Dosage: UNK
     Route: 048
  4. ZESTRIL [Concomitant]
     Indication: BLOOD PRESSURE INCREASED
     Dosage: UNK
     Route: 048

REACTIONS (1)
  - Vulvovaginal dryness [Not Recovered/Not Resolved]
